FAERS Safety Report 19360877 (Version 1)
Quarter: 2021Q2

REPORT INFORMATION
  Report Type: Report from Study
  Country: None (occurrence: US)
  Receive Date: 20210602
  Receipt Date: 20210602
  Transmission Date: 20210717
  Serious: No
  Sender: FDA-Public Use
  Company Number: US-MDD US OPERATIONS-MDD202011-002332

PATIENT
  Age: 71 Year
  Sex: Female
  Weight: 68 kg

DRUGS (4)
  1. APOKYN [Suspect]
     Active Substance: APOMORPHINE HYDROCHLORIDE
     Route: 058
     Dates: start: 20201005
  2. APOKYN [Suspect]
     Active Substance: APOMORPHINE HYDROCHLORIDE
     Route: 058
  3. APOKYN [Suspect]
     Active Substance: APOMORPHINE HYDROCHLORIDE
     Indication: PARKINSON^S DISEASE
     Dosage: NOT PROVIDED
     Dates: start: 20200924
  4. LEVODOPA [Concomitant]
     Active Substance: LEVODOPA
     Dosage: NOT PROVIDED

REACTIONS (7)
  - Nausea [Unknown]
  - Loss of personal independence in daily activities [Unknown]
  - Parosmia [Unknown]
  - Blood pressure fluctuation [Unknown]
  - Fatigue [Unknown]
  - Somnolence [Unknown]
  - Dizziness [Unknown]

NARRATIVE: CASE EVENT DATE: 2020
